FAERS Safety Report 6529569-8 (Version None)
Quarter: 2010Q1

REPORT INFORMATION
  Report Type: 
  Country: None (occurrence: None)
  Receive Date: 20100107
  Receipt Date: 20091231
  Transmission Date: 20100710
  Serious: Yes (Hospitalization, Other)
  Sender: FDA-Public Use
  Company Number: US-JNJFOC-20090704934

PATIENT
  Sex: Female
  Weight: 54.43 kg

DRUGS (13)
  1. LEVAQUIN [Suspect]
     Indication: PULMONARY OEDEMA
     Route: 048
  2. LEVAQUIN [Suspect]
     Route: 048
  3. UNKNOWN MEDICATION [Concomitant]
     Indication: PULMONARY CONGESTION
     Route: 048
  4. ASPIRIN [Concomitant]
     Route: 065
  5. LASIX [Concomitant]
     Indication: OEDEMA PERIPHERAL
     Route: 065
  6. LISINOPRIL [Concomitant]
     Route: 065
  7. NORPACE [Concomitant]
     Route: 065
  8. PROPYLTHIOURACIL TAB [Concomitant]
     Route: 065
  9. SPIRIVA [Concomitant]
     Route: 065
  10. VERELAN [Concomitant]
     Route: 065
  11. VOSPIRE [Concomitant]
     Dosage: 3 TABLETS IN MORNING AND 3 TABLETS AT NIGHT
     Route: 065
  12. XANAX [Concomitant]
     Route: 065
  13. ZOLOFT [Concomitant]
     Route: 065

REACTIONS (5)
  - APHASIA [None]
  - CHOKING [None]
  - DYSPHAGIA [None]
  - DYSPNOEA [None]
  - OXYGEN SATURATION DECREASED [None]
